FAERS Safety Report 5989329-3 (Version None)
Quarter: 2008Q4

REPORT INFORMATION
  Report Type: 
  Country: None (occurrence: None)
  Receive Date: 20081210
  Receipt Date: 20081202
  Transmission Date: 20090506
  Serious: Yes (Hospitalization)
  Sender: FDA-Public Use
  Company Number: BR-ABBOTT-08P-020-0481357-00

PATIENT
  Sex: Female

DRUGS (3)
  1. HUMIRA [Suspect]
     Indication: RHEUMATOID ARTHRITIS
     Route: 058
     Dates: start: 20061101
  2. HUMIRA [Suspect]
     Indication: BEHCET'S SYNDROME
  3. UNKNOWN CORTICOIDS [Concomitant]
     Indication: DRUG USE FOR UNKNOWN INDICATION

REACTIONS (4)
  - BLINDNESS [None]
  - IMMUNE SYSTEM DISORDER [None]
  - OPTIC NEURITIS [None]
  - VISUAL IMPAIRMENT [None]
